FAERS Safety Report 24600338 (Version 10)
Quarter: 2025Q2

REPORT INFORMATION
  Report Type: Spontaneous
  Country: US (occurrence: US)
  Receive Date: 20241110
  Receipt Date: 20250620
  Transmission Date: 20250716
  Serious: Yes (Other)
  Sender: SANOFI AVENTIS
  Company Number: US-SA-2024SA320532

PATIENT
  Age: 25 Year
  Sex: Female

DRUGS (7)
  1. DUPIXENT [Suspect]
     Active Substance: DUPILUMAB
     Indication: Chronic rhinosinusitis with nasal polyps
     Dosage: 300 MG, QOW
     Route: 058
     Dates: start: 20241003
  2. DUPIXENT [Suspect]
     Active Substance: DUPILUMAB
     Indication: Nasal polyps
  3. CUVITRU [Suspect]
     Active Substance: HUMAN IMMUNOGLOBULIN G
     Route: 065
  4. GAMUNEX-C [Concomitant]
     Active Substance: HUMAN IMMUNOGLOBULIN G
  5. LIDOCAINE\PRILOCAINE [Concomitant]
     Active Substance: LIDOCAINE\PRILOCAINE
  6. DIPHENHYDRAMINE [Concomitant]
     Active Substance: DIPHENHYDRAMINE
     Indication: Hypersensitivity
  7. Lmx 4 plus [Concomitant]

REACTIONS (23)
  - Kidney infection [Unknown]
  - Peripheral swelling [Not Recovered/Not Resolved]
  - Sinusitis bacterial [Unknown]
  - Nasal congestion [Unknown]
  - Pain [Recovered/Resolved]
  - Fatigue [Unknown]
  - Decreased appetite [Unknown]
  - Joint swelling [Unknown]
  - Abdominal pain upper [Unknown]
  - Infusion site irritation [Unknown]
  - Migraine with aura [Unknown]
  - Illness [Unknown]
  - Infection [Unknown]
  - Infusion site pruritus [Unknown]
  - Infusion site pain [Unknown]
  - Infusion site rash [Recovered/Resolved]
  - Headache [Unknown]
  - Pruritus [Unknown]
  - Erythema [Recovered/Resolved]
  - Urinary tract infection [Not Recovered/Not Resolved]
  - Pollakiuria [Not Recovered/Not Resolved]
  - Injection site swelling [Unknown]
  - Injection site erythema [Unknown]

NARRATIVE: CASE EVENT DATE: 20241001
